FAERS Safety Report 9315598 (Version 1)
Quarter: 2013Q2

REPORT INFORMATION
  Report Type: Spontaneous
  Country: US (occurrence: US)
  Receive Date: 20130529
  Receipt Date: 20130529
  Transmission Date: 20140414
  Serious: Yes (Other)
  Sender: FDA-Public Use
  Company Number: US-SHIRE-ALL1-2013-03322

PATIENT
  Age: 49 Year
  Sex: Male

DRUGS (11)
  1. ATORVASTATIN [Concomitant]
     Indication: HYPERCHOLESTEROLAEMIA
     Dosage: UNK, UNKNOWN
     Route: 065
  2. VALSARTAN [Concomitant]
     Indication: HYPERTENSION
     Dosage: UNK, UNKNOWN
     Route: 065
  3. TRIAMTERENE [Concomitant]
     Indication: HYPERTENSION
     Dosage: UNK, UNKNOWN
     Route: 065
  4. CARBATROL EXTENDED RELEASE [Suspect]
     Indication: EPILEPSY
     Dosage: UNK, UNKNOWN
     Route: 048
  5. LACOSAMIDE [Suspect]
     Indication: EPILEPSY
     Dosage: 400 MG, 1X/DAY:QD
     Route: 065
  6. LACOSAMIDE [Suspect]
     Dosage: 300 MG, 1X/DAY:QD
     Route: 065
  7. LACOSAMIDE [Suspect]
     Dosage: 200 MG, 1X/DAY:QD
     Route: 065
  8. LACOSAMIDE [Suspect]
     Dosage: 100 MG, 1X/DAY:QD
     Route: 065
  9. LAMOTRIGINE [Suspect]
     Indication: EPILEPSY
     Dosage: UNK, UNKNOWN
     Route: 065
  10. CLONAZEPAM [Concomitant]
     Indication: EPILEPSY
     Dosage: UNK, UNKNOWN
     Route: 065
  11. VALPROATE [Concomitant]
     Indication: EPILEPSY
     Dosage: UNK, UNKNOWN
     Route: 065

REACTIONS (4)
  - Ventricular tachycardia [Recovered/Resolved]
  - Bundle branch block left [Recovered/Resolved]
  - Electrocardiogram QRS complex prolonged [Recovered/Resolved]
  - Atrioventricular block first degree [Recovered/Resolved]
